FAERS Safety Report 15773170 (Version 2)
Quarter: 2019Q1

REPORT INFORMATION
  Report Type: Spontaneous
  Country: US (occurrence: US)
  Receive Date: 20181228
  Receipt Date: 20190124
  Transmission Date: 20190417
  Serious: No
  Sender: FDA-Public Use
  Company Number: US-MYLANLABS-2018M1092914

PATIENT
  Age: 28 Year
  Sex: Male
  Weight: 72.56 kg

DRUGS (2)
  1. GASTROCROM [Suspect]
     Active Substance: CROMOLYN SODIUM
     Indication: MAST CELL ACTIVATION SYNDROME
     Dosage: 2 VIALS, QID
     Route: 048
  2. GASTROCROM [Suspect]
     Active Substance: CROMOLYN SODIUM
     Dosage: HALF AMPULE, QID
     Route: 048
     Dates: start: 20181101, end: 201811

REACTIONS (5)
  - Gastrooesophageal reflux disease [Unknown]
  - Chest discomfort [Recovered/Resolved]
  - Abdominal discomfort [Unknown]
  - Nausea [Recovered/Resolved]
  - Dyspnoea [Recovered/Resolved]

NARRATIVE: CASE EVENT DATE: 20181101
